FAERS Safety Report 9015313 (Version 1)
Quarter: 2013Q1

REPORT INFORMATION
  Report Type: Spontaneous
  Country: US (occurrence: None)
  Receive Date: 20130109
  Receipt Date: 20130109
  Transmission Date: 20140127
  Serious: Yes (Other)
  Sender: FDA-Public Use
  Company Number: None

PATIENT
  Age: 66 Year
  Sex: Male
  Weight: 67.59 kg

DRUGS (1)
  1. LEVOFLOXACIN [Suspect]
     Dosage: 500 MG. TAB. 1 PER DAY ORAL
     Route: 048
     Dates: start: 20121210, end: 20121218

REACTIONS (3)
  - Musculoskeletal pain [None]
  - Muscle spasms [None]
  - Fear [None]
